FAERS Safety Report 8199218-4 (Version None)
Quarter: 2012Q1

REPORT INFORMATION
  Report Type: 
  Country: None (occurrence: None)
  Receive Date: 20120309
  Receipt Date: 20120305
  Transmission Date: 20120608
  Serious: Yes (Other)
  Sender: FDA-Public Use
  Company Number: US-PFIZER INC-2012004506

PATIENT

DRUGS (1)
  1. GEODON [Suspect]
     Dosage: 60 MG, 1X/DAY
     Route: 048

REACTIONS (1)
  - DEMENTIA [None]
